FAERS Safety Report 24070750 (Version 1)
Quarter: 2024Q3

REPORT INFORMATION
  Report Type: Report from Study
  Country: US (occurrence: US)
  Receive Date: 20240710
  Receipt Date: 20240710
  Transmission Date: 20241016
  Serious: No
  Sender: ROCHE
  Company Number: US-ROCHE-3318401

PATIENT
  Age: 76 Year
  Sex: Male

DRUGS (2)
  1. ALECENSA [Suspect]
     Active Substance: ALECTINIB HYDROCHLORIDE
     Indication: Lung neoplasm malignant
     Dosage: TAKE 4 CAPSULE(S) BY MOUTH EVERY 12 HOURS WITH FOOD SWALLOW WHOLE, IF VOMITING OCCURS WAIT FOR NEXT
     Route: 048
  2. ALECENSA [Suspect]
     Active Substance: ALECTINIB HYDROCHLORIDE
     Indication: Lymphadenopathy

REACTIONS (2)
  - Liver disorder [Unknown]
  - Blood bilirubin abnormal [Unknown]
